FAERS Safety Report 5291825-1 (Version None)
Quarter: 2007Q2

REPORT INFORMATION
  Report Type: 
  Country: None (occurrence: None)
  Receive Date: 20070406
  Receipt Date: 20070406
  Transmission Date: 20071010
  Serious: Yes (Disabling)
  Sender: FDA-Public Use
  Company Number: None

PATIENT
  Age: 50 Year
  Sex: Female
  Weight: 40.8237 kg

DRUGS (1)
  1. CRESTOR [Suspect]
     Indication: MYOPATHY
     Dosage: 20MG DAILY ORAL
     Route: 048
     Dates: start: 20031120, end: 20061218

REACTIONS (4)
  - CEREBELLAR ATAXIA [None]
  - FALL [None]
  - MUSCULAR WEAKNESS [None]
  - NEUROPATHY PERIPHERAL [None]
